FAERS Safety Report 4312818-4 (Version None)
Quarter: 2004Q1

REPORT INFORMATION
  Report Type: 
  Country: None (occurrence: None)
  Receive Date: 20040304
  Receipt Date: 20040219
  Transmission Date: 20041129
  Serious: Yes (Other)
  Sender: FDA-Public Use
  Company Number: 2004-06680

PATIENT
  Age: 44 Year
  Sex: Male

DRUGS (3)
  1. VIREAD [Suspect]
     Indication: HIV INFECTION
     Dosage: 300 MG QD; PO
     Route: 048
     Dates: start: 20030401, end: 20040206
  2. NORVIR [Concomitant]
  3. INVIRASE [Concomitant]

REACTIONS (1)
  - SCOTOMA [None]
